FAERS Safety Report 5774205-1 (Version None)
Quarter: 2008Q2

REPORT INFORMATION
  Report Type: 
  Country: None (occurrence: None)
  Receive Date: 20080616
  Receipt Date: 20080605
  Transmission Date: 20081010
  Serious: Yes (Hospitalization)
  Sender: FDA-Public Use
  Company Number: BR-JNJFOC-20080601873

PATIENT
  Age: 2 Month
  Sex: Female
  Weight: 6 kg

DRUGS (3)
  1. MICONAZOLE NITRATE [Suspect]
     Route: 048
  2. MICONAZOLE NITRATE [Suspect]
     Indication: ORAL CANDIDIASIS
     Route: 048
  3. MYLICON [Concomitant]
     Indication: ABDOMINAL PAIN

REACTIONS (1)
  - DYSPNOEA [None]
